FAERS Safety Report 9405335 (Version 1)
Quarter: 2013Q3

REPORT INFORMATION
  Report Type: Spontaneous
  Country: FR (occurrence: FR)
  Receive Date: 20130717
  Receipt Date: 20130717
  Transmission Date: 20140515
  Serious: Yes (Hospitalization)
  Sender: FDA-Public Use
  Company Number: FR-JNJFOC-20130707262

PATIENT
  Age: 42 Year
  Sex: Male
  Weight: 100 kg

DRUGS (3)
  1. REMICADE [Suspect]
     Indication: ANKYLOSING SPONDYLITIS
     Dosage: 500 MG PER CYCLE
     Route: 042
  2. REMICADE [Suspect]
     Indication: ANKYLOSING SPONDYLITIS
     Route: 042
  3. REMICADE [Suspect]
     Indication: ANKYLOSING SPONDYLITIS
     Dosage: 500 MG PER CYCLE, TENTH CYCLE
     Route: 042
     Dates: start: 20130626, end: 20130626

REACTIONS (6)
  - Dyspnoea [Recovered/Resolved]
  - Chills [Recovered/Resolved]
  - Tachycardia [Recovered/Resolved]
  - Pyrexia [Recovered/Resolved]
  - Infusion related reaction [Recovered/Resolved]
  - Drug hypersensitivity [Unknown]
